FAERS Safety Report 12312983 (Version 4)
Quarter: 2016Q2

REPORT INFORMATION
  Report Type: Spontaneous
  Country: DK (occurrence: DK)
  Receive Date: 20160428
  Receipt Date: 20160601
  Transmission Date: 20160815
  Serious: Yes (Death)
  Sender: FDA-Public Use
  Company Number: DK-ROCHE-1747262

PATIENT
  Age: 78 Year
  Sex: Male
  Weight: 75 kg

DRUGS (7)
  1. FLUOROURACIL. [Concomitant]
     Active Substance: FLUOROURACIL
     Indication: RECTAL CANCER
     Route: 065
     Dates: start: 20160121
  2. PREDNISOLON [Concomitant]
     Active Substance: PREDNISOLONE
     Indication: RECTAL CANCER
     Route: 065
     Dates: start: 20160204
  3. AVASTIN [Suspect]
     Active Substance: BEVACIZUMAB
     Indication: RECTAL CANCER
     Dosage: FORM STRENGHT 25 MG/ML
     Route: 042
     Dates: start: 20160204, end: 20160414
  4. OXALIPLATIN. [Concomitant]
     Active Substance: OXALIPLATIN
     Indication: RECTAL CANCER
     Route: 065
     Dates: start: 20160121
  5. PONDOCILLIN [Concomitant]
     Active Substance: PIVAMPICILLIN HYDROCHLORIDE
     Indication: INFECTION
     Route: 065
     Dates: start: 20160401
  6. LOSARSTAD COMP [Concomitant]
     Indication: HYPERTENSION
  7. FOLINIC ACID [Concomitant]
     Active Substance: LEUCOVORIN

REACTIONS (2)
  - Gastrointestinal haemorrhage [Fatal]
  - Circulatory collapse [Fatal]

NARRATIVE: CASE EVENT DATE: 20160419
